FAERS Safety Report 13527756 (Version 2)
Quarter: 2017Q2

REPORT INFORMATION
  Report Type: Spontaneous
  Country: US (occurrence: US)
  Receive Date: 20170509
  Receipt Date: 20170628
  Transmission Date: 20170830
  Serious: Yes (Hospitalization)
  Sender: FDA-Public Use
  Company Number: US-UNITED THERAPEUTICS-UNT-2017-006405

PATIENT
  Sex: Male

DRUGS (1)
  1. REMODULIN [Suspect]
     Active Substance: TREPROSTINIL
     Indication: PULMONARY ARTERIAL HYPERTENSION
     Dosage: 0.0183 ?G/KG, CONTINUING
     Route: 058
     Dates: start: 20170313

REACTIONS (3)
  - Drug dose omission [Unknown]
  - Mental status changes [Unknown]
  - Infusion site infection [Unknown]

NARRATIVE: CASE EVENT DATE: 2017
